FAERS Safety Report 7641841-7 (Version None)
Quarter: 2011Q3

REPORT INFORMATION
  Report Type: 
  Country: None (occurrence: None)
  Receive Date: 20110728
  Receipt Date: 20110715
  Transmission Date: 20111222
  Serious: Yes (Death)
  Sender: FDA-Public Use
  Company Number: DZ-ROCHE-791853

PATIENT
  Sex: Female

DRUGS (13)
  1. LAPATINIB [Suspect]
     Indication: BREAST CANCER
     Route: 065
     Dates: start: 20100504
  2. TRASTUZUMAB [Suspect]
     Indication: BREAST CANCER
     Dosage: FREQUENCY: PER CURE
     Route: 042
     Dates: start: 20100225, end: 20100504
  3. BEVACIZUMAB [Suspect]
     Indication: BREAST CANCER
     Route: 042
     Dates: start: 20090823, end: 20091223
  4. BEVACIZUMAB [Suspect]
     Route: 042
     Dates: end: 20110521
  5. GEMCITABINE [Suspect]
     Indication: BREAST CANCER
     Dosage: FREQUENCY: PER CURE.
     Route: 042
     Dates: start: 20110208, end: 20110521
  6. CAPECITABINE [Suspect]
     Indication: METASTASES TO LUNG
     Route: 048
     Dates: start: 20080830, end: 20090106
  7. CAPECITABINE [Suspect]
     Route: 048
     Dates: start: 20090823, end: 20091223
  8. VINORELBINE [Suspect]
     Route: 065
  9. BEVACIZUMAB [Suspect]
     Dosage: FREQUENCY: PER CURE
     Route: 042
     Dates: start: 20110208, end: 20110421
  10. VINORELBINE [Suspect]
     Route: 065
     Dates: start: 20090823, end: 20091223
  11. DOCETAXEL [Concomitant]
     Dates: start: 20080830, end: 20090106
  12. TRASTUZUMAB [Suspect]
     Route: 042
     Dates: start: 20101220, end: 20110111
  13. LAPATINIB [Suspect]
     Route: 065
     Dates: start: 20101220, end: 20110111

REACTIONS (2)
  - HYPOXIA [None]
  - DISEASE PROGRESSION [None]
